FAERS Safety Report 5391537-X (Version None)
Quarter: 2007Q3

REPORT INFORMATION
  Report Type: 
  Country: None (occurrence: None)
  Receive Date: 20070719
  Receipt Date: 20070710
  Transmission Date: 20080115
  Serious: Yes (Other)
  Sender: FDA-Public Use
  Company Number: AU-PFIZER INC-2007057528

PATIENT
  Age: 50 Year
  Sex: Female

DRUGS (2)
  1. ZELDOX (CAPSULES) [Suspect]
     Indication: SCHIZOPHRENIA
     Route: 048
     Dates: start: 20070701, end: 20070709
  2. TEGRETOL [Concomitant]

REACTIONS (1)
  - STEVENS-JOHNSON SYNDROME [None]
